FAERS Safety Report 13440679 (Version 1)
Quarter: 2017Q2

REPORT INFORMATION
  Report Type: Spontaneous
  Country: US (occurrence: US)
  Receive Date: 20170413
  Receipt Date: 20170413
  Transmission Date: 20170830
  Serious: No
  Sender: FDA-Public Use
  Company Number: US-ASTELLAS-2017US006952

PATIENT
  Sex: Female

DRUGS (1)
  1. PROGRAF [Suspect]
     Active Substance: TACROLIMUS\TACROLIMUS ANHYDROUS
     Indication: NEOPLASM MALIGNANT
     Dosage: 4 CAPSULES (1 MG EACH), TWICE DAILY
     Route: 048
     Dates: start: 20160914

REACTIONS (2)
  - Alopecia [Recovering/Resolving]
  - Off label use [Unknown]
